FAERS Safety Report 25007367 (Version 4)
Quarter: 2025Q2

REPORT INFORMATION
  Report Type: Report from Study
  Country: JP (occurrence: JP)
  Receive Date: 20250225
  Receipt Date: 20250606
  Transmission Date: 20250716
  Serious: Yes (Hospitalization, Other)
  Sender: TAKEDA
  Company Number: JP-TAKEDA-2025TJP001879

PATIENT
  Age: 76 Year
  Sex: Male

DRUGS (24)
  1. VEDOLIZUMAB [Suspect]
     Active Substance: VEDOLIZUMAB
     Indication: Crohn^s disease
     Dates: start: 20240213, end: 20250107
  2. RABEPRAZOLE SODIUM [Concomitant]
     Active Substance: RABEPRAZOLE SODIUM
  3. BISOPROLOL FUMARATE [Concomitant]
     Active Substance: BISOPROLOL FUMARATE
  4. AMLODIPINE [Concomitant]
     Active Substance: AMLODIPINE BESYLATE
  5. EZETIMIBE [Concomitant]
     Active Substance: EZETIMIBE
  6. MIROGABALIN BESYLATE [Concomitant]
     Active Substance: MIROGABALIN BESYLATE
  7. FEXOFENADINE HYDROCHLORIDE [Concomitant]
     Active Substance: FEXOFENADINE HYDROCHLORIDE
  8. ELOBIXIBAT [Concomitant]
     Active Substance: ELOBIXIBAT
  9. GLIMEPIRIDE [Concomitant]
     Active Substance: GLIMEPIRIDE
  10. TENELIGLIPTIN [Concomitant]
     Active Substance: TENELIGLIPTIN
  11. XYZAL [Concomitant]
     Active Substance: LEVOCETIRIZINE DIHYDROCHLORIDE
  12. PREDNISOLONE [Concomitant]
     Active Substance: PREDNISOLONE
  13. MAGNESIUM OXIDE [Concomitant]
     Active Substance: MAGNESIUM OXIDE
     Dates: start: 20240227, end: 20240325
  14. LOXOPROFEN SODIUM [Concomitant]
     Active Substance: LOXOPROFEN SODIUM
  15. REBAMIPIDE [Concomitant]
     Active Substance: REBAMIPIDE
  16. CYMBALTA [Concomitant]
     Active Substance: DULOXETINE HYDROCHLORIDE
     Dates: start: 20240315, end: 20240516
  17. BETAMETHASONE DIPROPIONATE [Concomitant]
     Active Substance: BETAMETHASONE DIPROPIONATE
     Dates: start: 20240227, end: 20241011
  18. BETAMETHASONE DIPROPIONATE [Concomitant]
     Active Substance: BETAMETHASONE DIPROPIONATE
     Dates: start: 20240517, end: 20240607
  19. BETAMETHASONE DIPROPIONATE [Concomitant]
     Active Substance: BETAMETHASONE DIPROPIONATE
  20. VONOPRAZAN FUMARATE [Concomitant]
     Active Substance: VONOPRAZAN FUMARATE
  21. JARDIANCE [Concomitant]
     Active Substance: EMPAGLIFLOZIN
  22. LOCOID [Concomitant]
     Active Substance: HYDROCORTISONE BUTYRATE
  23. HERBALS [Concomitant]
     Active Substance: HERBALS
  24. Heparinoid [Concomitant]

REACTIONS (7)
  - Type 2 diabetes mellitus [Recovered/Resolved]
  - Eczema asteatotic [Recovered/Resolved]
  - Musculoskeletal pain [Recovering/Resolving]
  - Pruritus [Recovered/Resolved]
  - Drug eruption [Recovered/Resolved]
  - Drug eruption [Recovering/Resolving]
  - Back pain [Not Recovered/Not Resolved]

NARRATIVE: CASE EVENT DATE: 20240201
